FAERS Safety Report 6840280 (Version 2)
Quarter: 2013Q1

REPORT INFORMATION
  Report Type: Spontaneous
  Country: BG (occurrence: None)
  Receive Date: 20081128
  Receipt Date: 20130108
  Transmission Date: 20140127
  Serious: Yes (Hospitalization, Other)
  Sender: FDA-Public Use
  Company Number: 2008AP002137

PATIENT
  Age: 23 Year
  Sex: Male

DRUGS (4)
  1. CARBAMAZEPINE [Suspect]
  2. CEPHALEXIN [Concomitant]
  3. METAMIZOLE SODIU (METAMIZOLE SODIUM) [Concomitant]
  4. ACETAMINOPHEN [Concomitant]

REACTIONS (8)
  - Drug reaction with eosinophilia and systemic symptoms [None]
  - CYTOMEGALOVIRUS TEST POSITIVE [None]
  - PYREXIA [None]
  - HEPATOMEGALY [None]
  - LYMPHADENOPATHY [None]
  - RASH MACULO-PAPULAR [None]
  - DERMATITIS EXFOLIATIVE [None]
  - HEPATITIS [None]
